FAERS Safety Report 7541491-7 (Version None)
Quarter: 2011Q2

REPORT INFORMATION
  Report Type: 
  Country: None (occurrence: None)
  Receive Date: 20110613
  Receipt Date: 20060605
  Transmission Date: 20111010
  Serious: No
  Sender: FDA-Public Use
  Company Number: 2006BI008200

PATIENT
  Age: 58 Year
  Sex: Male
  Weight: 86 kg

DRUGS (4)
  1. TYSABRI [Suspect]
     Indication: MULTIPLE SCLEROSIS
     Route: 042
     Dates: start: 20050101, end: 20050201
  2. AVONEX [Concomitant]
     Indication: MULTIPLE SCLEROSIS
     Route: 030
     Dates: end: 20050101
  3. TYSABRI [Suspect]
     Route: 042
     Dates: start: 20050212
  4. TYSABRI [Suspect]
     Route: 042
     Dates: start: 20071127, end: 20110419

REACTIONS (2)
  - GAIT DISTURBANCE [None]
  - MOBILITY DECREASED [None]
